FAERS Safety Report 7878400-7 (Version None)
Quarter: 2011Q4

REPORT INFORMATION
  Report Type: 
  Country: None (occurrence: None)
  Receive Date: 20111028
  Receipt Date: 20111024
  Transmission Date: 20120403
  Serious: Yes (Other)
  Sender: FDA-Public Use
  Company Number: ADR-2011-11369

PATIENT
  Sex: Male

DRUGS (2)
  1. LIORESAL [Suspect]
     Indication: MUSCLE SPASTICITY
     Dosage: 777 MCG,DAILY,INTRATH.
     Route: 037
  2. LIORESAL [Suspect]
     Indication: MULTIPLE SCLEROSIS
     Dosage: 777 MCG,DAILY,INTRATH.
     Route: 037

REACTIONS (6)
  - DECREASED ACTIVITY [None]
  - UNDERDOSE [None]
  - DRUG INEFFECTIVE [None]
  - MUSCLE SPASTICITY [None]
  - DISEASE PROGRESSION [None]
  - MUSCULOSKELETAL STIFFNESS [None]
